FAERS Safety Report 10717847 (Version 1)
Quarter: 2015Q1

REPORT INFORMATION
  Report Type: Spontaneous
  Country: US (occurrence: US)
  Receive Date: 20150116
  Receipt Date: 20150116
  Transmission Date: 20150721
  Serious: Yes (Other)
  Sender: FDA-Public Use
  Company Number: US-ARIAD PHARMACEUTICALS, INC-2014US003577

PATIENT

DRUGS (1)
  1. ICLUSIG [Suspect]
     Active Substance: PONATINIB
     Indication: CHRONIC MYELOID LEUKAEMIA
     Dosage: 45 MG, QD
     Route: 048
     Dates: start: 20140725

REACTIONS (3)
  - Eyelid skin dryness [Not Recovered/Not Resolved]
  - Dry skin [Not Recovered/Not Resolved]
  - Transfusion [Unknown]

NARRATIVE: CASE EVENT DATE: 20140727
